FAERS Safety Report 6524625-2 (Version None)
Quarter: 2010Q1

REPORT INFORMATION
  Report Type: 
  Country: None (occurrence: None)
  Receive Date: 20100104
  Receipt Date: 20091228
  Transmission Date: 20100710
  Serious: Yes (Death, Hospitalization)
  Sender: FDA-Public Use
  Company Number: PHHY2009IN58656

PATIENT
  Age: 9 Year
  Sex: Male

DRUGS (1)
  1. ASUNRA [Suspect]
     Dosage: 2 TABLETS OF 400 MG

REACTIONS (2)
  - DEATH [None]
  - HAEMATOLOGICAL MALIGNANCY [None]
